FAERS Safety Report 6849431-0 (Version None)
Quarter: 2010Q3

REPORT INFORMATION
  Report Type: 
  Country: None (occurrence: None)
  Receive Date: 20100716
  Receipt Date: 20070928
  Transmission Date: 20110219
  Serious: No
  Sender: FDA-Public Use
  Company Number: US-PFIZER INC-2007082757

PATIENT
  Age: 37 Year
  Sex: Male
  Weight: 82.727 kg

DRUGS (3)
  1. CHANTIX [Suspect]
     Indication: SMOKING CESSATION THERAPY
     Route: 048
     Dates: start: 20070824, end: 20070901
  2. WELLBUTRIN [Concomitant]
  3. LIPITOR [Concomitant]

REACTIONS (1)
  - RASH [None]
